FAERS Safety Report 7035803-0 (Version None)
Quarter: 2010Q4

REPORT INFORMATION
  Report Type: 
  Country: None (occurrence: None)
  Receive Date: 20101008
  Receipt Date: 20100930
  Transmission Date: 20110411
  Serious: No
  Sender: FDA-Public Use
  Company Number: B0677621A

PATIENT
  Age: 18 Year
  Sex: Female

DRUGS (1)
  1. RELENZA [Suspect]
     Indication: PRODUCT USED FOR UNKNOWN INDICATION
     Dosage: 3IUAX PER DAY
     Route: 055

REACTIONS (1)
  - ACCIDENTAL OVERDOSE [None]
